FAERS Safety Report 19627592 (Version 2)
Quarter: 2021Q4

REPORT INFORMATION
  Report Type: Spontaneous
  Country: US (occurrence: US)
  Receive Date: 20210729
  Receipt Date: 20211116
  Transmission Date: 20220303
  Serious: Yes (Other)
  Sender: FDA-Public Use
  Company Number: US-GLAXOSMITHKLINE-US2021GSK162464

PATIENT
  Sex: Female

DRUGS (24)
  1. ZANTAC [Suspect]
     Active Substance: RANITIDINE HYDROCHLORIDE
     Indication: Oesophagitis
     Dosage: 75 MG
     Route: 065
     Dates: start: 199501, end: 201401
  2. ZANTAC [Suspect]
     Active Substance: RANITIDINE HYDROCHLORIDE
     Indication: Hiatus hernia
     Dosage: 150 MG
     Route: 065
     Dates: start: 199501, end: 201401
  3. ZANTAC [Suspect]
     Active Substance: RANITIDINE HYDROCHLORIDE
     Indication: Oesophagitis
     Dosage: 75 MG
     Route: 065
     Dates: start: 199501, end: 201401
  4. ZANTAC [Suspect]
     Active Substance: RANITIDINE HYDROCHLORIDE
     Indication: Hiatus hernia
     Dosage: 150 MG
     Route: 065
     Dates: start: 199501, end: 201401
  5. RANITIDINE [Suspect]
     Active Substance: RANITIDINE
     Indication: Oesophagitis
     Dosage: 75 MG
     Route: 065
     Dates: start: 199501, end: 201401
  6. RANITIDINE [Suspect]
     Active Substance: RANITIDINE
     Indication: Hiatus hernia
     Dosage: 150 MG, QD
     Route: 065
     Dates: start: 200601, end: 201912
  7. RANITIDINE [Suspect]
     Active Substance: RANITIDINE
     Indication: Dyspepsia
  8. RANITIDINE [Suspect]
     Active Substance: RANITIDINE
     Indication: Gastrooesophageal reflux disease
  9. RANITIDINE [Suspect]
     Active Substance: RANITIDINE
     Indication: Dyspepsia
  10. RANITIDINE [Suspect]
     Active Substance: RANITIDINE
     Indication: Dyspepsia
  11. RANITIDINE HYDROCHLORIDE [Suspect]
     Active Substance: RANITIDINE HYDROCHLORIDE
     Indication: Oesophagitis
     Dosage: 75 MG
     Route: 065
     Dates: start: 199501, end: 201401
  12. RANITIDINE HYDROCHLORIDE [Suspect]
     Active Substance: RANITIDINE HYDROCHLORIDE
     Indication: Hiatus hernia
     Dosage: 150 MG
     Route: 065
     Dates: start: 199501, end: 201401
  13. ZANTAC [Suspect]
     Active Substance: RANITIDINE HYDROCHLORIDE
     Indication: Dyspepsia
     Dosage: UNK UNK, QD
     Route: 065
     Dates: start: 200601, end: 201912
  14. ZANTAC [Suspect]
     Active Substance: RANITIDINE HYDROCHLORIDE
     Indication: Gastrooesophageal reflux disease
     Dosage: UNK
  15. ZANTAC [Suspect]
     Active Substance: RANITIDINE HYDROCHLORIDE
     Indication: Dyspepsia
  16. ZANTAC [Suspect]
     Active Substance: RANITIDINE HYDROCHLORIDE
     Indication: Dyspepsia
  17. RANITIDINE [Suspect]
     Active Substance: RANITIDINE
     Indication: Dyspepsia
     Dosage: UNK UNK, QD
     Route: 065
     Dates: start: 200601, end: 201912
  18. RANITIDINE [Suspect]
     Active Substance: RANITIDINE
     Indication: Gastrooesophageal reflux disease
     Dosage: UNK
  19. RANITIDINE [Suspect]
     Active Substance: RANITIDINE
     Indication: Dyspepsia
  20. RANITIDINE [Suspect]
     Active Substance: RANITIDINE
     Indication: Dyspepsia
  21. RANITIDINE [Suspect]
     Active Substance: RANITIDINE
     Indication: Dyspepsia
     Dosage: UNK, QD
     Route: 065
     Dates: start: 200601, end: 201912
  22. RANITIDINE [Suspect]
     Active Substance: RANITIDINE
     Indication: Gastrooesophageal reflux disease
     Dosage: UNK
  23. RANITIDINE [Suspect]
     Active Substance: RANITIDINE
     Indication: Dyspepsia
  24. RANITIDINE [Suspect]
     Active Substance: RANITIDINE
     Indication: Dyspepsia

REACTIONS (1)
  - Breast cancer [Unknown]
